FAERS Safety Report 6719662-9 (Version None)
Quarter: 2010Q2

REPORT INFORMATION
  Report Type: 
  Country: None (occurrence: None)
  Receive Date: 20100510
  Receipt Date: 20100510
  Transmission Date: 20101027
  Serious: Yes (Disabling)
  Sender: FDA-Public Use
  Company Number: None

PATIENT
  Age: 60 Year
  Sex: Male
  Weight: 99.7 kg

DRUGS (1)
  1. DIPHENHYDRAMINE HCL [Suspect]
     Indication: BRONCHOSCOPY
     Dosage: 50 MG ONE TIME IV BOLUS
     Route: 040
     Dates: start: 20100101, end: 20100507

REACTIONS (1)
  - MUSCLE RIGIDITY [None]
